FAERS Safety Report 7081064 (Version 3)
Quarter: 2013Q1

REPORT INFORMATION
  Report Type: Report from Study
  Country: BR (occurrence: BR)
  Receive Date: 20090813
  Receipt Date: 20130315
  Transmission Date: 20140127
  Serious: Yes (Other)
  Sender: FDA-Public Use
  Company Number: BR-ABBOTT-09P-020-0590073-00

PATIENT
  Sex: Male
  Weight: 95 kg

DRUGS (5)
  1. HUMIRA 40 MG/ 0.8 ML PRE-FILLED SYRINGE [Suspect]
     Indication: RHEUMATOID ARTHRITIS
     Route: 058
  2. HUMIRA 40 MG/ 0.8 ML PRE-FILLED SYRINGE [Suspect]
     Route: 058
  3. ZILORIQUE [Concomitant]
     Indication: BLOOD URIC ACID
     Route: 048
  4. UNKNOWN MEDICATION [Concomitant]
     Indication: HYPERTENSION
     Route: 048
  5. ACETYLSALICYLIC ACID INFANT [Concomitant]
     Indication: HYPERTENSION
     Route: 048

REACTIONS (2)
  - Coronary artery occlusion [Recovered/Resolved]
  - Pain [Unknown]
